FAERS Safety Report 9527986 (Version 1)
Quarter: 2013Q3

REPORT INFORMATION
  Report Type: Spontaneous
  Country: US (occurrence: US)
  Receive Date: 20130917
  Receipt Date: 20130917
  Transmission Date: 20140515
  Serious: Yes (Hospitalization, Other)
  Sender: FDA-Public Use
  Company Number: US-MERCK-1309USA005595

PATIENT
  Sex: 0

DRUGS (1)
  1. JANUVIA [Suspect]
     Dosage: UNK
     Route: 048

REACTIONS (2)
  - Pancreatitis [Recovering/Resolving]
  - Adverse event [Recovering/Resolving]
